FAERS Safety Report 8518625-0 (Version None)
Quarter: 2012Q3

REPORT INFORMATION
  Report Type: 
  Country: None (occurrence: None)
  Receive Date: 20120718
  Receipt Date: 20110613
  Transmission Date: 20120928
  Serious: No
  Sender: FDA-Public Use
  Company Number: US-BRISTOL-MYERS SQUIBB COMPANY-15796329

PATIENT
  Age: 81 Year
  Sex: Male

DRUGS (2)
  1. COUMADIN [Suspect]
     Indication: THROMBOSIS
     Dates: start: 20110101, end: 20110401
  2. WARFARIN SODIUM [Suspect]

REACTIONS (3)
  - RENAL IMPAIRMENT [None]
  - MALAISE [None]
  - NAUSEA [None]
